FAERS Safety Report 11955857 (Version 2)
Quarter: 2016Q1

REPORT INFORMATION
  Report Type: Report from Study
  Country: US (occurrence: US)
  Receive Date: 20160125
  Receipt Date: 20160202
  Transmission Date: 20160526
  Serious: No
  Sender: FDA-Public Use
  Company Number: US-ABBVIE-15K-163-1343502-00

PATIENT
  Age: 11 Year
  Sex: Female
  Weight: 34.96 kg

DRUGS (7)
  1. CALCIUM [Concomitant]
     Active Substance: CALCIUM
     Indication: PRODUCT USED FOR UNKNOWN INDICATION
  2. HUMIRA [Suspect]
     Active Substance: ADALIMUMAB
     Indication: CROHN^S DISEASE
     Route: 065
     Dates: start: 201306, end: 201412
  3. IRON [Concomitant]
     Active Substance: IRON
     Indication: PRODUCT USED FOR UNKNOWN INDICATION
  4. HUMIRA [Suspect]
     Active Substance: ADALIMUMAB
     Route: 065
     Dates: start: 201501
  5. FOLIC ACID. [Concomitant]
     Active Substance: FOLIC ACID
     Indication: PRODUCT USED FOR UNKNOWN INDICATION
  6. VITAMIN D [Concomitant]
     Active Substance: CHOLECALCIFEROL
     Indication: PRODUCT USED FOR UNKNOWN INDICATION
  7. METHOTREXATE [Concomitant]
     Active Substance: METHOTREXATE
     Indication: PRODUCT USED FOR UNKNOWN INDICATION
     Dates: start: 201306

REACTIONS (11)
  - Juvenile idiopathic arthritis [Not Recovered/Not Resolved]
  - Arthralgia [Recovering/Resolving]
  - Joint swelling [Recovering/Resolving]
  - Scab [Recovering/Resolving]
  - Arthralgia [Recovered/Resolved]
  - Alopecia [Not Recovered/Not Resolved]
  - Rash pustular [Recovering/Resolving]
  - Cyst [Unknown]
  - Eczema [Recovering/Resolving]
  - Joint swelling [Recovered/Resolved]
  - Tendonitis [Recovered/Resolved]

NARRATIVE: CASE EVENT DATE: 201408
